FAERS Safety Report 14829585 (Version 1)
Quarter: 2018Q2

REPORT INFORMATION
  Report Type: Report from Study
  Country: US (occurrence: US)
  Receive Date: 20180430
  Receipt Date: 20180430
  Transmission Date: 20180711
  Serious: Yes (Hospitalization)
  Sender: FDA-Public Use
  Company Number: US-BAYER-2018-078914

PATIENT
  Age: 19 Year

DRUGS (2)
  1. ASPIRIN. [Suspect]
     Active Substance: ASPIRIN
  2. WARFARIN [Interacting]
     Active Substance: WARFARIN
     Dosage: UNK

REACTIONS (7)
  - Drug administration error [None]
  - Catheter site haemorrhage [None]
  - Respiratory failure [None]
  - Labelled drug-drug interaction medication error [None]
  - Pulmonary contusion [None]
  - Procedural haemorrhage [None]
  - Wound dehiscence [None]
